FAERS Safety Report 13842013 (Version 2)
Quarter: 2018Q3

REPORT INFORMATION
  Report Type: Spontaneous
  Country: US (occurrence: US)
  Receive Date: 20170807
  Receipt Date: 20180801
  Transmission Date: 20181010
  Serious: No
  Sender: FDA-Public Use
  Company Number: US-AMGEN-USASP2017111787

PATIENT
  Age: 93 Year
  Sex: Female

DRUGS (2)
  1. NPLATE [Suspect]
     Active Substance: ROMIPLOSTIM
     Dosage: 510 MUG, QWK
     Route: 058
     Dates: start: 20170720
  2. NPLATE [Suspect]
     Active Substance: ROMIPLOSTIM
     Indication: IMMUNE THROMBOCYTOPENIC PURPURA
     Dosage: UNK, UNK
     Route: 058

REACTIONS (1)
  - Drug effect incomplete [Unknown]
